FAERS Safety Report 4556734-1 (Version None)
Quarter: 2005Q1

REPORT INFORMATION
  Report Type: 
  Country: None (occurrence: None)
  Receive Date: 20050103
  Receipt Date: 20041018
  Transmission Date: 20050727
  Serious: No
  Sender: FDA-Public Use
  Company Number: 2004UW21680

PATIENT
  Age: 68 Year
  Sex: Male

DRUGS (7)
  1. CRESTOR [Suspect]
     Dosage: 10 MG QD PO
     Route: 048
  2. METOPROLOL [Concomitant]
  3. NEXIUM [Concomitant]
  4. ASPIRIN [Concomitant]
  5. FESOFOR [Concomitant]
  6. COLACE [Concomitant]
  7. VOLTAREN [Concomitant]

REACTIONS (1)
  - MYALGIA [None]
